FAERS Safety Report 22383736 (Version 4)
Quarter: 2025Q2

REPORT INFORMATION
  Report Type: Report from Study
  Country: IT (occurrence: IT)
  Receive Date: 20230530
  Receipt Date: 20250530
  Transmission Date: 20250716
  Serious: Yes (Hospitalization, Other)
  Sender: RANBAXY
  Company Number: IT-SUN PHARMACEUTICAL INDUSTRIES LTD-2023RR-384653

PATIENT
  Age: 73 Year
  Sex: Male
  Weight: 68 kg

DRUGS (9)
  1. SONIDEGIB [Suspect]
     Active Substance: SONIDEGIB
     Indication: Basal cell carcinoma
     Dosage: 200 MILLIGRAM, DAILY
     Route: 048
     Dates: start: 20200908, end: 20211014
  2. CALCIUM CARBONATE [Concomitant]
     Active Substance: CALCIUM CARBONATE
     Indication: Pre-existing disease
     Dosage: UNK UNK, DAILY
     Route: 048
  3. SODIUM CARBONATE [Concomitant]
     Active Substance: SODIUM CARBONATE
     Indication: Pre-existing disease
     Dosage: UNK UNK, DAILY
     Route: 048
  4. doxasozina [Concomitant]
     Indication: Pre-existing disease
     Dosage: 4 MILLIGRAM, DAILY
     Route: 048
  5. LASIX [Concomitant]
     Active Substance: FUROSEMIDE
     Indication: Pre-existing disease
     Dosage: 25 MILLIGRAM,THREE TIMES DAILY
     Route: 048
  6. Foline [Concomitant]
     Indication: Prophylaxis
     Dosage: 5 MILLIGRAM, DAILY
     Route: 048
  7. OXATOMIDE [Concomitant]
     Active Substance: OXATOMIDE
     Indication: Pre-existing disease
     Route: 048
  8. ACETAMINOPHEN [Concomitant]
     Active Substance: ACETAMINOPHEN
     Indication: Prophylaxis
     Dosage: 1 GRAM, DAILY
     Route: 048
  9. BROMAZEPAM [Concomitant]
     Active Substance: BROMAZEPAM
     Indication: Prophylaxis
     Route: 048

REACTIONS (3)
  - Muscle spasms [Unknown]
  - Sepsis [Recovered/Resolved]
  - Muscle spasms [Recovered/Resolved]

NARRATIVE: CASE EVENT DATE: 20211014
